FAERS Safety Report 10223581 (Version 2)
Quarter: 2018Q2

REPORT INFORMATION
  Report Type: Report from Study
  Country: US (occurrence: US)
  Receive Date: 20140609
  Receipt Date: 20180522
  Transmission Date: 20180711
  Serious: Yes (Hospitalization, Other)
  Sender: FDA-Public Use
  Company Number: US-ROCHE-1409713

PATIENT
  Age: 16 Year
  Sex: Female
  Weight: 45.49 kg

DRUGS (14)
  1. SYMBICORT [Concomitant]
     Active Substance: BUDESONIDE\FORMOTEROL FUMARATE DIHYDRATE
     Dosage: 1 PUFF
     Route: 055
  2. MIRALAX [Concomitant]
     Active Substance: POLYETHYLENE GLYCOL 3350
     Route: 048
  3. ALBUTEROL HFA [Concomitant]
     Active Substance: ALBUTEROL SULFATE
     Indication: DYSPNOEA
     Route: 055
  4. POLYETHYLENE GLYCOL [Concomitant]
     Active Substance: POLYETHYLENE GLYCOLS
     Route: 048
  5. PEPCID (UNITED STATES) [Concomitant]
     Route: 048
  6. RETIN-A [Concomitant]
     Active Substance: TRETINOIN
     Route: 061
  7. NUTROPIN AQ [Suspect]
     Active Substance: SOMATROPIN
     Indication: BODY HEIGHT BELOW NORMAL
     Route: 058
     Dates: start: 200901
  8. MIRALAX [Concomitant]
     Active Substance: POLYETHYLENE GLYCOL 3350
     Route: 048
  9. PROVENTIL [Concomitant]
     Active Substance: ALBUTEROL
     Dosage: 2 PUFFS
     Route: 065
  10. BENADRYL COLD [Concomitant]
  11. BENADRYL ALLERGY [Concomitant]
     Active Substance: DIPHENHYDRAMINE HYDROCHLORIDE
     Route: 048
  12. SYMBICORT [Concomitant]
     Active Substance: BUDESONIDE\FORMOTEROL FUMARATE DIHYDRATE
     Dosage: INHALATION. 1 PUFF DAILY
     Route: 065
  13. NORCO [Concomitant]
     Active Substance: ACETAMINOPHEN\HYDROCODONE BITARTRATE
  14. ANUSOL OINTMENT (UNITED STATES) [Concomitant]
     Route: 054

REACTIONS (19)
  - Strabismus [Recovered/Resolved]
  - Asthma [Unknown]
  - Weight decreased [Unknown]
  - Fatigue [Unknown]
  - Nausea [Unknown]
  - Abdominal pain [Unknown]
  - Acne [Unknown]
  - Lymphocyte count increased [Unknown]
  - Blood alkaline phosphatase decreased [Unknown]
  - Hypophagia [Unknown]
  - Menorrhagia [Unknown]
  - Constipation [Unknown]
  - Dysmenorrhoea [Unknown]
  - Headache [Unknown]
  - Rhinitis allergic [Unknown]
  - Oropharyngeal pain [Unknown]
  - Gastrooesophageal reflux disease [Unknown]
  - Menstruation irregular [Unknown]
  - Vomiting [Unknown]

NARRATIVE: CASE EVENT DATE: 20131025
